FAERS Safety Report 14833245 (Version 3)
Quarter: 2019Q1

REPORT INFORMATION
  Report Type: Spontaneous
  Country: US (occurrence: US)
  Receive Date: 20180501
  Receipt Date: 20190327
  Transmission Date: 20190417
  Serious: Yes (Other)
  Sender: FDA-Public Use
  Company Number: US-PFIZER INC-2018179034

PATIENT

DRUGS (8)
  1. PROTONIX [Suspect]
     Active Substance: PANTOPRAZOLE SODIUM
  2. PREVACID [Suspect]
     Active Substance: LANSOPRAZOLE
  3. NEXIUM 24HR [Suspect]
     Active Substance: ESOMEPRAZOLE MAGNESIUM
  4. PRILOSEC [Suspect]
     Active Substance: OMEPRAZOLE MAGNESIUM
  5. PRILOSEC OTC [Suspect]
     Active Substance: OMEPRAZOLE MAGNESIUM
  6. NEXIUM [Suspect]
     Active Substance: ESOMEPRAZOLE MAGNESIUM
  7. DEXILANT [Suspect]
     Active Substance: DEXLANSOPRAZOLE
  8. PREVACID 24 HR [Suspect]
     Active Substance: LANSOPRAZOLE

REACTIONS (2)
  - Renal failure [Unknown]
  - Chronic kidney disease [Unknown]
